FAERS Safety Report 20226716 (Version 2)
Quarter: 2022Q1

REPORT INFORMATION
  Report Type: Spontaneous
  Country: JP (occurrence: JP)
  Receive Date: 20211224
  Receipt Date: 20220107
  Transmission Date: 20220423
  Serious: Yes (Hospitalization, Other)
  Sender: FDA-Public Use
  Company Number: JP-GSKNCCC-Case-01380875_AE-53098

PATIENT
  Age: 77 Year
  Sex: Female

DRUGS (1)
  1. BENLYSTA [Suspect]
     Active Substance: BELIMUMAB
     Dosage: UNK

REACTIONS (1)
  - Rhabdomyolysis [Unknown]
